FAERS Safety Report 15578117 (Version 1)
Quarter: 2018Q4

REPORT INFORMATION
  Report Type: Report from Study
  Country: CN (occurrence: CN)
  Receive Date: 20181102
  Receipt Date: 20181102
  Transmission Date: 20190205
  Serious: Yes (Other)
  Sender: FDA-Public Use
  Company Number: CN-ROCHE-2206065

PATIENT

DRUGS (8)
  1. MYRISTICA FRAGRANS [Suspect]
     Active Substance: HERBALS\NUTMEG
     Indication: GASTRIC CANCER
     Route: 065
  2. CODONOPSIS PILOSULA [Suspect]
     Active Substance: CODONOPSIS PILOSULA ROOT\HERBALS
     Indication: GASTRIC CANCER
     Route: 065
  3. ASTRAGALUS MEMBRANACEUS [Suspect]
     Indication: GASTRIC CANCER
     Route: 065
  4. CAPECITABINE. [Suspect]
     Active Substance: CAPECITABINE
     Indication: GASTRIC CANCER
     Dosage: FROM DAY 1-14
     Route: 048
  5. RHIZOMA ATRACTYLODIS MACROCEPHALAE [Suspect]
     Active Substance: ATRACTYLODES MACROCEPHALA ROOT\HERBALS
     Indication: GASTRIC CANCER
     Route: 065
  6. PORIA COCOS [Suspect]
     Active Substance: HERBALS\SMILAX CHINA ROOT
     Indication: GASTRIC CANCER
     Route: 065
  7. OXALIPLATIN. [Suspect]
     Active Substance: OXALIPLATIN
     Indication: GASTRIC CANCER
     Dosage: ON DAY1
     Route: 041
  8. FIVELEAF AKEBIA FRUIT [Suspect]
     Active Substance: AKEBIA QUINATA FRUIT\HERBALS
     Indication: GASTRIC CANCER
     Route: 065

REACTIONS (8)
  - Hepatic function abnormal [Unknown]
  - Neutrophil count decreased [Unknown]
  - Vomiting [Unknown]
  - White blood cell count decreased [Unknown]
  - Nausea [Unknown]
  - Anaemia [Unknown]
  - Renal impairment [Unknown]
  - Platelet count decreased [Unknown]
